FAERS Safety Report 4562781-6 (Version None)
Quarter: 2005Q1

REPORT INFORMATION
  Report Type: 
  Country: None (occurrence: None)
  Receive Date: 20050121
  Receipt Date: 20050105
  Transmission Date: 20050727
  Serious: Yes (Hospitalization, Disabling)
  Sender: FDA-Public Use
  Company Number: 2004SE06370

PATIENT
  Age: 53 Year
  Sex: Female

DRUGS (8)
  1. PLENDIL [Suspect]
     Indication: HYPERTENSION
     Dosage: 10 MG DAILY PO
     Route: 048
     Dates: start: 19960101, end: 20040715
  2. ZOCORD [Suspect]
  3. SOTALOL HCL [Suspect]
  4. LASIX [Concomitant]
  5. IMOVANE [Concomitant]
  6. RINEXIN [Concomitant]
  7. TERRA-CORTRIL [Concomitant]
  8. TRISEKVENS [Concomitant]

REACTIONS (18)
  - ASTHENIA [None]
  - BLOOD PRESSURE INCREASED [None]
  - DIFFICULTY IN WALKING [None]
  - DISCOMFORT [None]
  - FALL [None]
  - FEELING ABNORMAL [None]
  - GASTRIC DISORDER [None]
  - GENERAL PHYSICAL HEALTH DETERIORATION [None]
  - GENERALISED OEDEMA [None]
  - HYPOAESTHESIA [None]
  - JOINT SWELLING [None]
  - MICTURITION URGENCY [None]
  - NERVE INJURY [None]
  - NUCLEAR MAGNETIC RESONANCE IMAGING ABNORMAL [None]
  - OEDEMA PERIPHERAL [None]
  - OTITIS EXTERNA [None]
  - PARAESTHESIA [None]
  - SWELLING [None]
